FAERS Safety Report 9549914 (Version 1)
Quarter: 2013Q3

REPORT INFORMATION
  Report Type: Spontaneous
  Country: FR (occurrence: FR)
  Receive Date: 20130924
  Receipt Date: 20130924
  Transmission Date: 20140515
  Serious: Yes (Other)
  Sender: FDA-Public Use
  Company Number: FR-TEVA-432656ISR

PATIENT
  Age: 24 Year
  Sex: Female
  Weight: 60.5 kg

DRUGS (3)
  1. LEELOO 0.1 MG/0.02 MG [Suspect]
     Dosage: 1 DOSE DAILY FOR THREE WEEKS AND STOP ONE WEEK.
     Route: 048
     Dates: start: 20130501, end: 20130531
  2. PAROXETINE HEMIHYDRATE [Concomitant]
     Indication: DEPRESSION
     Dosage: 30 MILLIGRAM DAILY;
     Route: 048
  3. UNSPECIFIED HYPNOTICS [Concomitant]

REACTIONS (5)
  - Depression [Recovered/Resolved]
  - Anxiety [Recovered/Resolved]
  - Insomnia [Recovered/Resolved]
  - Irritability [Recovered/Resolved]
  - Decreased appetite [Recovered/Resolved]
